FAERS Safety Report 25455100 (Version 1)
Quarter: 2025Q2

REPORT INFORMATION
  Report Type: Spontaneous
  Country: BR (occurrence: BR)
  Receive Date: 20250619
  Receipt Date: 20250619
  Transmission Date: 20250717
  Serious: Yes (Other)
  Sender: ROCHE
  Company Number: BR-ROCHE-10000313226

PATIENT
  Sex: Male

DRUGS (5)
  1. VABYSMO [Suspect]
     Active Substance: FARICIMAB-SVOA
     Indication: Diabetic retinopathy
     Route: 065
  2. VABYSMO [Suspect]
     Active Substance: FARICIMAB-SVOA
     Indication: Vitritis
  3. VABYSMO [Suspect]
     Active Substance: FARICIMAB-SVOA
     Indication: Corneal opacity
  4. VABYSMO [Suspect]
     Active Substance: FARICIMAB-SVOA
     Indication: Corneal oedema
  5. DEXAMETHASONE SODIUM PHOSPHATE\MOXIFLOXACIN HYDROCHLORIDE [Concomitant]
     Active Substance: DEXAMETHASONE SODIUM PHOSPHATE\MOXIFLOXACIN HYDROCHLORIDE

REACTIONS (1)
  - Surgery [Unknown]
